FAERS Safety Report 16790552 (Version 1)
Quarter: 2019Q3

REPORT INFORMATION
  Report Type: Spontaneous
  Country: IT (occurrence: IT)
  Receive Date: 20190910
  Receipt Date: 20190910
  Transmission Date: 20191005
  Serious: Yes (Other)
  Sender: FDA-Public Use
  Company Number: IT-MYLANLABS-2019M1083687

PATIENT
  Age: 65 Year
  Sex: Female

DRUGS (1)
  1. ALPRAZOLAM. [Suspect]
     Active Substance: ALPRAZOLAM
     Indication: PRODUCT USED FOR UNKNOWN INDICATION
     Dosage: 20 MILLILITER, TOTAL
     Route: 048
     Dates: start: 20190403, end: 20190403

REACTIONS (8)
  - Sopor [Recovered/Resolved]
  - Headache [Recovered/Resolved]
  - Speech disorder [Recovered/Resolved]
  - Hypothermia [Recovered/Resolved]
  - Vomiting [Recovered/Resolved]
  - Injury [Recovered/Resolved]
  - Confusional state [Recovered/Resolved]
  - Wrong drug [Recovered/Resolved]

NARRATIVE: CASE EVENT DATE: 20190403
